FAERS Safety Report 19455872 (Version 3)
Quarter: 2022Q1

REPORT INFORMATION
  Report Type: Report from Study
  Country: US (occurrence: US)
  Receive Date: 20210624
  Receipt Date: 20220331
  Transmission Date: 20220423
  Serious: Yes (Other)
  Sender: FDA-Public Use
  Company Number: US-GILEAD-2021-0537322

PATIENT
  Age: 71 Year
  Sex: Male

DRUGS (16)
  1. BREXUCABTAGENE AUTOLEUCEL [Suspect]
     Active Substance: BREXUCABTAGENE AUTOLEUCEL
     Indication: Mantle cell lymphoma
     Dosage: 68
     Route: 042
     Dates: start: 20201216, end: 20201216
  2. CYCLOPHOSPHAMIDE [Suspect]
     Active Substance: CYCLOPHOSPHAMIDE
     Indication: Bone marrow conditioning regimen
     Dosage: 500
     Route: 065
     Dates: start: 20201211, end: 20201213
  3. FLUDARABINE [Suspect]
     Active Substance: FLUDARABINE PHOSPHATE
     Indication: Bone marrow conditioning regimen
     Dosage: 1 DOSAGE FORM, QD; 18
     Route: 065
     Dates: start: 20201211, end: 20201213
  4. ZOLPIDEM [Concomitant]
     Active Substance: ZOLPIDEM TARTRATE
  5. ALLOPURINOL [Concomitant]
     Active Substance: ALLOPURINOL
     Dosage: UNK
     Dates: start: 20170330
  6. PRAVASTATIN [Concomitant]
     Active Substance: PRAVASTATIN
     Dosage: UNK
     Dates: start: 20180726
  7. TAMSULOSIN [Concomitant]
     Active Substance: TAMSULOSIN
     Dosage: UNK
     Dates: start: 20191118
  8. AMLODIPINE [Concomitant]
     Active Substance: AMLODIPINE BESYLATE
  9. ACYCLOVIR [Concomitant]
     Active Substance: ACYCLOVIR
  10. CHOLECALCIFEROL [Concomitant]
     Active Substance: CHOLECALCIFEROL
     Dosage: UNK
     Dates: start: 20201214
  11. INSULIN GLARGINE [Concomitant]
     Active Substance: INSULIN GLARGINE
     Dosage: UNK
     Dates: start: 20201214
  12. SULFAMETHOXAZOLE AND TRIMETHOPRIM [Concomitant]
     Active Substance: SULFAMETHOXAZOLE\TRIMETHOPRIM
     Dosage: UNK
     Dates: start: 20201216
  13. VITAMINS [Concomitant]
     Active Substance: VITAMINS
  14. LABETALOL [Concomitant]
     Active Substance: LABETALOL\LABETALOL HYDROCHLORIDE
     Dosage: UNK
     Dates: start: 20201225
  15. TOLTERODINE [Concomitant]
     Active Substance: TOLTERODINE
     Dosage: UNK
     Dates: start: 20210312
  16. PREDNISONE [Concomitant]
     Active Substance: PREDNISONE
     Dosage: UNK
     Dates: start: 20210430

REACTIONS (1)
  - Hepatitis B [Not Recovered/Not Resolved]

NARRATIVE: CASE EVENT DATE: 20210512
